FAERS Safety Report 7047484-0 (Version None)
Quarter: 2010Q4

REPORT INFORMATION
  Report Type: 
  Country: None (occurrence: None)
  Receive Date: 20101008
  Receipt Date: 20100921
  Transmission Date: 20110411
  Serious: Yes (Other)
  Sender: FDA-Public Use
  Company Number: FKO201000398

PATIENT
  Age: 32 Year
  Sex: Male

DRUGS (3)
  1. ETOPOSIDE [Suspect]
     Indication: SEMINOMA
  2. CISPLATIN [Suspect]
     Indication: SEMINOMA
  3. BLEOMYCIN SULFATE [Suspect]
     Indication: SEMINOMA

REACTIONS (5)
  - HILAR LYMPHADENOPATHY [None]
  - INTERLEUKIN-2 RECEPTOR INCREASED [None]
  - LYMPHADENOPATHY MEDIASTINAL [None]
  - SARCOIDOSIS [None]
  - THERAPEUTIC RESPONSE DECREASED [None]
